FAERS Safety Report 12206865 (Version 2)
Quarter: 2016Q2

REPORT INFORMATION
  Report Type: Report from Study
  Country: BR (occurrence: BR)
  Receive Date: 20160324
  Receipt Date: 20160610
  Transmission Date: 20160815
  Serious: Yes (Other)
  Sender: FDA-Public Use
  Company Number: PHHY2016BR038295

PATIENT
  Sex: Male
  Weight: 48 kg

DRUGS (1)
  1. EXJADE [Suspect]
     Active Substance: DEFERASIROX
     Indication: SICKLE CELL ANAEMIA
     Dosage: 3 DF OF 500 MG (30 MG/KG), QD
     Route: 048

REACTIONS (4)
  - Vomiting [Unknown]
  - Brain hypoxia [Unknown]
  - Drug intolerance [Unknown]
  - Malaise [Recovered/Resolved]
